FAERS Safety Report 5377234-5 (Version None)
Quarter: 2007Q3

REPORT INFORMATION
  Report Type: 
  Country: None (occurrence: None)
  Receive Date: 20070703
  Receipt Date: 20070620
  Transmission Date: 20080115
  Serious: Yes (Other)
  Sender: FDA-Public Use
  Company Number: US-ELI_LILLY_AND_COMPANY-US200706004601

PATIENT
  Age: 62 Year
  Sex: Female

DRUGS (2)
  1. FORTEO [Suspect]
     Indication: OSTEOPOROSIS
     Dosage: UNK, UNKNOWN
     Dates: start: 20070404
  2. CALCIUM CHLORIDE [Concomitant]
     Indication: SUPPLEMENTATION THERAPY

REACTIONS (3)
  - VISION BLURRED [None]
  - VITREOUS DISORDER [None]
  - VITREOUS FLOATERS [None]
